FAERS Safety Report 24616513 (Version 1)
Quarter: 2024Q4

REPORT INFORMATION
  Report Type: Spontaneous
  Country: US (occurrence: US)
  Receive Date: 20241114
  Receipt Date: 20241114
  Transmission Date: 20250115
  Serious: Yes (Other)
  Sender: TAKEDA
  Company Number: US-TAKEDA-2024TUS112349

PATIENT
  Sex: Female

DRUGS (1)
  1. MOTEGRITY [Suspect]
     Active Substance: PRUCALOPRIDE SUCCINATE
     Indication: Product used for unknown indication
     Dosage: UNK

REACTIONS (5)
  - Intentional self-injury [Unknown]
  - Pain [Unknown]
  - Anger [Unknown]
  - Trance [Unknown]
  - Off label use [Unknown]
